FAERS Safety Report 14679116 (Version 2)
Quarter: 2019Q3

REPORT INFORMATION
  Report Type: Other
  Country: IT (occurrence: IT)
  Receive Date: 20180326
  Receipt Date: 20190704
  Transmission Date: 20191004
  Serious: Yes (Other)
  Sender: FDA-Public Use
  Company Number: IT-LUPIN PHARMACEUTICALS INC.-2018-02478

PATIENT
  Age: 36 Year
  Sex: Female

DRUGS (2)
  1. RUFINAMIDE [Suspect]
     Active Substance: RUFINAMIDE
     Indication: EPILEPSY
     Dosage: 800 MILLIGRAM, UNK
     Route: 048
  2. LEVETIRACETAM. [Suspect]
     Active Substance: LEVETIRACETAM
     Indication: EPILEPSY
     Dosage: 3000 MILLIGRAM, QD
     Route: 048

REACTIONS (3)
  - Maternal exposure during pregnancy [Unknown]
  - Stillbirth [Unknown]
  - Abortion spontaneous [Unknown]
